FAERS Safety Report 10151665 (Version 1)
Quarter: 2014Q2

REPORT INFORMATION
  Report Type: Spontaneous
  Country: BR (occurrence: BR)
  Receive Date: 20140505
  Receipt Date: 20140505
  Transmission Date: 20141212
  Serious: Yes (Hospitalization)
  Sender: FDA-Public Use
  Company Number: BR-AMGEN-BRASP2014032017

PATIENT
  Age: 77 Year
  Sex: Female
  Weight: 61 kg

DRUGS (5)
  1. PROLIA [Suspect]
     Indication: OSTEOPOROSIS
     Dosage: 1 DF, Q6MO
     Route: 065
     Dates: start: 201309, end: 201309
  2. MICARDIS [Concomitant]
     Dosage: UNK
  3. ANCORON [Concomitant]
     Dosage: UNK
  4. MONOCORDIL [Concomitant]
     Dosage: UNK
  5. CALCIUM CARBONATE W/COLECALCIFEROL [Concomitant]
     Dosage: UNK

REACTIONS (2)
  - Pulmonary oedema [Not Recovered/Not Resolved]
  - Drug administration error [Recovered/Resolved]
